FAERS Safety Report 4886615-5 (Version None)
Quarter: 2006Q1

REPORT INFORMATION
  Report Type: 
  Country: None (occurrence: None)
  Receive Date: 20060119
  Receipt Date: 20060103
  Transmission Date: 20060701
  Serious: No
  Sender: FDA-Public Use
  Company Number: 220002L05GBR

PATIENT
  Age: 30 Year
  Sex: Female

DRUGS (1)
  1. SOMATROPIN (SOMATROPIN) [Suspect]
     Indication: GROWTH HORMONE DEFICIENCY

REACTIONS (2)
  - CRANIOPHARYNGIOMA [None]
  - NEOPLASM PROGRESSION [None]
